FAERS Safety Report 23081596 (Version 4)
Quarter: 2024Q1

REPORT INFORMATION
  Report Type: Report from Study
  Country: US (occurrence: US)
  Receive Date: 20231019
  Receipt Date: 20240222
  Transmission Date: 20240410
  Serious: Yes (Other)
  Sender: FDA-Public Use
  Company Number: US-TAKEDA-2022TUS007400

PATIENT
  Sex: Female
  Weight: 64.8 kg

DRUGS (52)
  1. TEDUGLUTIDE [Suspect]
     Active Substance: TEDUGLUTIDE
     Indication: Short-bowel syndrome
     Dosage: 2.99 MILLIGRAM, QD
     Route: 058
  2. TEDUGLUTIDE [Suspect]
     Active Substance: TEDUGLUTIDE
     Indication: Short-bowel syndrome
     Dosage: 2.99 MILLIGRAM, QD
     Route: 058
  3. TEDUGLUTIDE [Suspect]
     Active Substance: TEDUGLUTIDE
     Indication: Short-bowel syndrome
     Dosage: 2.99 MILLIGRAM, QD
     Route: 058
  4. TEDUGLUTIDE [Suspect]
     Active Substance: TEDUGLUTIDE
     Indication: Short-bowel syndrome
     Dosage: 2.99 MILLIGRAM, QD
     Route: 058
  5. TEDUGLUTIDE [Suspect]
     Active Substance: TEDUGLUTIDE
     Indication: Gastroenteritis
     Dosage: 3.3 MILLIGRAM, QD
     Route: 058
  6. TEDUGLUTIDE [Suspect]
     Active Substance: TEDUGLUTIDE
     Indication: Gastroenteritis
     Dosage: 3.3 MILLIGRAM, QD
     Route: 058
  7. TEDUGLUTIDE [Suspect]
     Active Substance: TEDUGLUTIDE
     Indication: Gastroenteritis
     Dosage: 3.3 MILLIGRAM, QD
     Route: 058
  8. TEDUGLUTIDE [Suspect]
     Active Substance: TEDUGLUTIDE
     Indication: Gastroenteritis
     Dosage: 3.3 MILLIGRAM, QD
     Route: 058
  9. TEDUGLUTIDE [Suspect]
     Active Substance: TEDUGLUTIDE
     Indication: Colitis
     Dosage: 3.2 MILLIGRAM, QOD
     Route: 058
  10. TEDUGLUTIDE [Suspect]
     Active Substance: TEDUGLUTIDE
     Indication: Colitis
     Dosage: 3.2 MILLIGRAM, QOD
     Route: 058
  11. TEDUGLUTIDE [Suspect]
     Active Substance: TEDUGLUTIDE
     Indication: Colitis
     Dosage: 3.2 MILLIGRAM, QOD
     Route: 058
  12. TEDUGLUTIDE [Suspect]
     Active Substance: TEDUGLUTIDE
     Indication: Colitis
     Dosage: 3.2 MILLIGRAM, QOD
     Route: 058
  13. ATROPINE\DIPHENOXYLATE [Concomitant]
     Active Substance: ATROPINE\DIPHENOXYLATE
     Dosage: UNK
     Route: 065
  14. CHOLESTYRAMINE [Concomitant]
     Active Substance: CHOLESTYRAMINE
     Dosage: 4 GRAM
     Route: 065
  15. FAMOTIDINE [Concomitant]
     Active Substance: FAMOTIDINE
     Dosage: UNK
     Route: 065
  16. DESLORATADINE [Concomitant]
     Active Substance: DESLORATADINE
     Dosage: 5 MILLIGRAM
     Route: 065
  17. ESTRACE [Concomitant]
     Active Substance: ESTRADIOL
     Dosage: UNK
     Route: 065
  18. BIOTIN [Concomitant]
     Active Substance: BIOTIN
     Dosage: 1 MILLIGRAM
     Route: 065
  19. PREGABALIN [Concomitant]
     Active Substance: PREGABALIN
     Dosage: UNK
     Route: 065
  20. PANTOPRAZOLE SODIUM [Concomitant]
     Active Substance: PANTOPRAZOLE SODIUM
     Dosage: 40 MILLIGRAM
     Route: 065
  21. LOPERAMIDE [Concomitant]
     Active Substance: LOPERAMIDE
     Dosage: UNK
     Route: 065
  22. ONDANSETRON [Concomitant]
     Active Substance: ONDANSETRON
     Dosage: 4 MILLIGRAM
     Route: 065
  23. LACTATED RINGERS SOLUTION [Concomitant]
     Active Substance: CALCIUM CHLORIDE\POTASSIUM CHLORIDE\SODIUM CHLORIDE\SODIUM LACTATE
     Dosage: UNK
     Route: 042
  24. FENTANYL [Concomitant]
     Active Substance: FENTANYL\FENTANYL CITRATE
     Dosage: UNK
     Route: 065
  25. ACETAMINOPHEN [Concomitant]
     Active Substance: ACETAMINOPHEN
     Dosage: 500 MILLIGRAM
     Route: 065
  26. PROCHLORPERAZINE MALEATE [Concomitant]
     Active Substance: PROCHLORPERAZINE MALEATE
     Dosage: UNK
     Route: 065
  27. XARELTO [Concomitant]
     Active Substance: RIVAROXABAN
     Dosage: 20 MILLIGRAM
     Route: 065
  28. XARELTO [Concomitant]
     Active Substance: RIVAROXABAN
     Dosage: 10 MILLIGRAM
     Route: 065
  29. RIZATRIPTAN [Concomitant]
     Active Substance: RIZATRIPTAN
     Dosage: UNK
     Route: 065
  30. PROMETHAZINE HYDROCHLORIDE [Concomitant]
     Active Substance: PROMETHAZINE HYDROCHLORIDE
     Dosage: UNK
     Route: 065
  31. AMOXICILLIN [Concomitant]
     Active Substance: AMOXICILLIN
     Dosage: 250 MILLIGRAM
     Route: 065
  32. NARCAN [Concomitant]
     Active Substance: NALOXONE HYDROCHLORIDE
     Dosage: 4 MILLIGRAM
     Route: 065
  33. LIDOCAINE [Concomitant]
     Active Substance: LIDOCAINE
     Dosage: UNK
     Route: 065
  34. TPN [Concomitant]
     Active Substance: AMINO ACIDS\DEXTROSE\ELECTROLYTES NOS\SOYBEAN OIL
     Dosage: UNK
     Route: 065
  35. SODIUM CHLORIDE [Concomitant]
     Active Substance: SODIUM CHLORIDE
     Dosage: UNK
     Route: 042
  36. HEPARIN [Concomitant]
     Active Substance: HEPARIN SODIUM
     Dosage: UNK
     Route: 065
  37. QUESTRAN [Concomitant]
     Active Substance: CHOLESTYRAMINE
     Dosage: 4 GRAM
     Route: 065
  38. BOTOX [Concomitant]
     Active Substance: ONABOTULINUMTOXINA
     Dosage: 10 DOSAGE FORM
     Route: 065
  39. CLARINEX [Concomitant]
     Active Substance: DESLORATADINE
     Dosage: 5 MILLIGRAM
     Route: 065
  40. IMODIUM A-D [Concomitant]
     Active Substance: LOPERAMIDE HYDROCHLORIDE
     Dosage: UNK
     Route: 065
  41. LOMOTIL [Concomitant]
     Active Substance: ATROPINE SULFATE\DIPHENOXYLATE HYDROCHLORIDE
     Dosage: UNK
     Route: 065
  42. BIOTENE NOS [Concomitant]
     Active Substance: CETYLPYRIDINIUM CHLORIDE OR SODIUM FLUORIDE OR SODIUM MONOFLUOROPHOSPHATE OR GLUCOSE OXIDASE\LACTOFE
     Dosage: UNK
     Route: 065
  43. RESTASIS [Concomitant]
     Active Substance: CYCLOSPORINE
     Dosage: UNK
     Route: 065
  44. TYLENOL EXTRA STRENGTH [Concomitant]
     Active Substance: ACETAMINOPHEN
     Dosage: UNK
     Route: 065
  45. MAXALT-MLT [Concomitant]
     Active Substance: RIZATRIPTAN BENZOATE
     Dosage: 10 MILLIGRAM
     Route: 065
  46. PROTONIX [Concomitant]
     Active Substance: PANTOPRAZOLE SODIUM
     Dosage: 40 MILLIGRAM
     Route: 065
  47. COMPAZINE [Concomitant]
     Active Substance: PROCHLORPERAZINE MALEATE
     Dosage: 10 MILLIGRAM
     Route: 065
  48. ZOFRAN [Concomitant]
     Active Substance: ONDANSETRON HYDROCHLORIDE
     Dosage: UNK
     Route: 065
  49. Electrolytes and glucose composition MG3 [Concomitant]
     Dosage: UNK
     Route: 065
  50. GABAPENTIN [Concomitant]
     Active Substance: GABAPENTIN
     Dosage: UNK
     Route: 065
  51. LYRICA [Concomitant]
     Active Substance: PREGABALIN
     Dosage: UNK
     Route: 065
  52. BACLOFEN [Concomitant]
     Active Substance: BACLOFEN
     Dosage: UNK
     Route: 065

REACTIONS (10)
  - Sepsis [Unknown]
  - Seizure [Unknown]
  - Dementia [Unknown]
  - Weight fluctuation [Unknown]
  - Eating disorder [Unknown]
  - Fluid retention [Unknown]
  - Nausea [Unknown]
  - Vomiting [Unknown]
  - Incorrect dose administered [Unknown]
  - Inappropriate schedule of product administration [Unknown]
